FAERS Safety Report 11250735 (Version 1)
Quarter: 2015Q3

REPORT INFORMATION
  Report Type: Spontaneous
  Country: US (occurrence: US)
  Receive Date: 20150708
  Receipt Date: 20150708
  Transmission Date: 20151125
  Serious: Yes (Other)
  Sender: FDA-Public Use
  Company Number: US-ELI_LILLY_AND_COMPANY-US201103007126

PATIENT
  Age: 46 Year
  Sex: Male

DRUGS (5)
  1. PROZAC [Suspect]
     Active Substance: FLUOXETINE HYDROCHLORIDE
     Indication: BIPOLAR II DISORDER
     Dosage: 40 MG, QD
     Dates: start: 2000, end: 201103
  2. LAMICTAL [Concomitant]
     Active Substance: LAMOTRIGINE
     Dosage: 100 MG, BID
     Dates: start: 2000
  3. ATIVAN [Concomitant]
     Active Substance: LORAZEPAM
     Dosage: 5 MG, UNK
  4. ATIVAN [Concomitant]
     Active Substance: LORAZEPAM
     Dosage: 10 MG, UNK
  5. PROZAC WEEKLY [Suspect]
     Active Substance: FLUOXETINE HYDROCHLORIDE
     Indication: BIPOLAR II DISORDER
     Dosage: UNK
     Dates: start: 201103, end: 201103

REACTIONS (3)
  - Mania [Not Recovered/Not Resolved]
  - Off label use [Recovered/Resolved]
  - Suicidal ideation [Not Recovered/Not Resolved]

NARRATIVE: CASE EVENT DATE: 201103
